FAERS Safety Report 9494092 (Version 1)
Quarter: 2013Q3

REPORT INFORMATION
  Report Type: Spontaneous
  Country: US (occurrence: None)
  Receive Date: 20130829
  Receipt Date: 20130829
  Transmission Date: 20140515
  Serious: No
  Sender: FDA-Public Use
  Company Number: None

PATIENT
  Age: 39 Year
  Sex: Female

DRUGS (5)
  1. TECFIDERA [Suspect]
     Indication: MULTIPLE SCLEROSIS
     Route: 048
     Dates: start: 201306
  2. KCL [Concomitant]
  3. AMITRIPTYLINE [Concomitant]
  4. FLUTICASONE NS [Concomitant]
  5. VITAMIN B12 [Concomitant]

REACTIONS (6)
  - Dysarthria [None]
  - Condition aggravated [None]
  - Balance disorder [None]
  - Visual impairment [None]
  - Nausea [None]
  - Decreased appetite [None]
